FAERS Safety Report 13622173 (Version 1)
Quarter: 2017Q2

REPORT INFORMATION
  Report Type: Spontaneous
  Country: US (occurrence: US)
  Receive Date: 20170607
  Receipt Date: 20170607
  Transmission Date: 20170830
  Serious: No
  Sender: FDA-Public Use
  Company Number: US-ROCHE-683953

PATIENT
  Age: 49 Year
  Sex: Male
  Weight: 63.5 kg

DRUGS (3)
  1. FUZEON [Suspect]
     Active Substance: ENFUVIRTIDE
     Indication: HIV INFECTION
     Route: 065
  2. SELZENTRY [Concomitant]
     Active Substance: MARAVIROC
     Route: 065
  3. INVIRASE [Concomitant]
     Active Substance: SAQUINAVIR MESYLATE
     Route: 065

REACTIONS (1)
  - Injection site mass [Not Recovered/Not Resolved]
